FAERS Safety Report 12897248 (Version 2)
Quarter: 2016Q4

REPORT INFORMATION
  Report Type: Spontaneous
  Country: US (occurrence: US)
  Receive Date: 20161031
  Receipt Date: 20161207
  Transmission Date: 20170207
  Serious: No
  Sender: FDA-Public Use
  Company Number: US-JNJFOC-20160907583

PATIENT
  Sex: Male
  Weight: 97.52 kg

DRUGS (10)
  1. CARBIDOPA. [Concomitant]
     Active Substance: CARBIDOPA
     Indication: PARKINSON^S DISEASE
     Dosage: DOSE: 25/100 MG
     Route: 048
     Dates: start: 201601
  2. FENTANYL TRANSDERMAL SYSTEM [Suspect]
     Active Substance: FENTANYL
     Indication: CANCER PAIN
     Dosage: STARTED ABOUT 5 TO 6 MONTHS AGO
     Route: 062
     Dates: start: 2016, end: 2016
  3. FENTANYL TRANSDERMAL SYSTEM [Suspect]
     Active Substance: FENTANYL
     Indication: CANCER PAIN
     Route: 062
     Dates: start: 2016, end: 2016
  4. FISH OIL [Concomitant]
     Active Substance: FISH OIL
     Indication: CARDIAC DISORDER
     Route: 048
  5. GLIPIZIDE. [Concomitant]
     Active Substance: GLIPIZIDE
     Indication: TYPE 2 DIABETES MELLITUS
     Route: 048
     Dates: start: 2014
  6. SIMVASTATIN. [Concomitant]
     Active Substance: SIMVASTATIN
     Indication: BLOOD CHOLESTEROL INCREASED
     Route: 048
  7. JAKAFI [Concomitant]
     Active Substance: RUXOLITINIB
     Indication: HAEMATOLOGICAL MALIGNANCY
     Route: 048
     Dates: start: 201605
  8. FENTANYL TRANSDERMAL SYSTEM [Suspect]
     Active Substance: FENTANYL
     Indication: CANCER PAIN
     Dosage: STARTED ABOUT 2 MONTHS AGO, 10 PATCHES MONTHLY
     Route: 062
     Dates: start: 2016
  9. PREDNISONE. [Concomitant]
     Active Substance: PREDNISONE
     Indication: NERVE INJURY
     Route: 048
     Dates: start: 201601
  10. TERAZOSIN [Concomitant]
     Active Substance: TERAZOSIN\TERAZOSIN HYDROCHLORIDE
     Indication: PROSTATOMEGALY
     Route: 048

REACTIONS (3)
  - Drug dose omission [Unknown]
  - Drug ineffective [Unknown]
  - Product packaging quantity issue [Unknown]

NARRATIVE: CASE EVENT DATE: 2016
